FAERS Safety Report 5907763-4 (Version None)
Quarter: 2008Q3

REPORT INFORMATION
  Report Type: 
  Country: None (occurrence: None)
  Receive Date: 20080929
  Receipt Date: 20080917
  Transmission Date: 20090109
  Serious: Yes (Life-Threatening, Hospitalization, Disabling)
  Sender: FDA-Public Use
  Company Number: 100#03#2008-04690

PATIENT
  Age: 31 Year
  Sex: Female

DRUGS (2)
  1. CITALOPRAM HYDROBROMIDE [Suspect]
     Indication: DEPRESSION
     Dosage: 20 MG; 40 MG
     Route: 048
     Dates: end: 20080826
  2. DIANETTE (ETHINYLESTRADIOL, CYPROTERONE) [Suspect]
     Indication: DRUG USE FOR UNKNOWN INDICATION
     Dosage: 1 DF ONCE DAILY
     Route: 048
     Dates: end: 20080826

REACTIONS (2)
  - HAEMORRHAGE INTRACRANIAL [None]
  - THROMBECTOMY [None]
